FAERS Safety Report 9820410 (Version 1)
Quarter: 2014Q1

REPORT INFORMATION
  Report Type: Spontaneous
  Country: US (occurrence: None)
  Receive Date: 20140114
  Receipt Date: 20140114
  Transmission Date: 20141002
  Serious: Yes (Other)
  Sender: FDA-Public Use
  Company Number: None

PATIENT
  Age: 66 Year
  Sex: Female
  Weight: 65.77 kg

DRUGS (2)
  1. AMOXICILLIN SANDOZ [Suspect]
     Indication: DENTAL OPERATION
     Dosage: BY MOUTH
     Dates: start: 20131015, end: 20131020
  2. AMOXICILLIN SANDOZ [Suspect]
     Indication: BONE GRAFT
     Dosage: BY MOUTH
     Dates: start: 20131015, end: 20131020

REACTIONS (7)
  - Abdominal pain upper [None]
  - Diarrhoea [None]
  - Pallor [None]
  - Asthenia [None]
  - Painful defaecation [None]
  - Vertigo [None]
  - Hepatitis [None]
